FAERS Safety Report 8557364-7 (Version None)
Quarter: 2012Q3

REPORT INFORMATION
  Report Type: 
  Country: None (occurrence: None)
  Receive Date: 20120801
  Receipt Date: 20120731
  Transmission Date: 20120928
  Serious: Yes (Hospitalization)
  Sender: FDA-Public Use
  Company Number: JP-PFIZER INC-2012176200

PATIENT
  Age: 65 Year
  Sex: Male

DRUGS (14)
  1. LANSOPRAZOLE [Suspect]
     Indication: PROPHYLAXIS AGAINST GASTROINTESTINAL ULCER
     Dosage: 15 MG, 1X/DAY
     Route: 048
     Dates: start: 20110118, end: 20110512
  2. CANDESARTAN CILEXETIL [Concomitant]
     Indication: MYOCARDIAL INFARCTION
     Dosage: 4MG DAILY
     Route: 048
     Dates: start: 20110118
  3. LOSARTAN POTASSIUM [Concomitant]
     Indication: MYOCARDIAL INFARCTION
     Dosage: 25MG DAILY
     Route: 048
     Dates: start: 20120223
  4. SIGMART [Concomitant]
     Indication: MYOCARDIAL INFARCTION
     Dosage: 15MG DAILY
     Route: 048
     Dates: start: 20110120
  5. RASILEZ [Concomitant]
     Indication: MYOCARDIAL INFARCTION
     Dosage: 150MG DAILY
     Route: 048
     Dates: start: 20110217
  6. AMIODARONE HYDROCHLORIDE [Suspect]
     Indication: MYOCARDIAL INFARCTION
     Dosage: 200MG DAILY
     Route: 048
     Dates: start: 20110120
  7. ASPIRIN [Concomitant]
     Indication: THROMBOSIS PROPHYLAXIS
  8. LIVALO [Concomitant]
     Indication: MYOCARDIAL INFARCTION
     Dosage: 2MG DAILY
     Route: 048
     Dates: start: 20110118
  9. LENDORMIN D [Concomitant]
     Indication: MYOCARDIAL INFARCTION
     Dosage: 0.25MG DAILY
     Route: 048
     Dates: start: 20110127
  10. PLAVIX [Concomitant]
     Indication: MYOCARDIAL INFARCTION
     Dosage: 75MG DAILY
     Route: 048
     Dates: start: 20110118
  11. ASPIRIN [Concomitant]
     Indication: MYOCARDIAL INFARCTION
     Dosage: 100MG DAILY
     Route: 048
     Dates: start: 20110118
  12. WARFARIN [Concomitant]
     Indication: MYOCARDIAL INFARCTION
     Dosage: 2.5MG DAILY
     Route: 048
     Dates: start: 20110120
  13. MAGMITT [Concomitant]
     Indication: MYOCARDIAL INFARCTION
     Dosage: 330MG DAILY
     Route: 048
     Dates: start: 20110207
  14. CARVEDILOL [Concomitant]
     Indication: MYOCARDIAL INFARCTION
     Dosage: 2.5MG DAILY
     Route: 048
     Dates: start: 20110201

REACTIONS (1)
  - INTERSTITIAL LUNG DISEASE [None]
